FAERS Safety Report 4668295-7 (Version None)
Quarter: 2005Q2

REPORT INFORMATION
  Report Type: 
  Country: None (occurrence: None)
  Receive Date: 20050523
  Receipt Date: 20050304
  Transmission Date: 20051028
  Serious: Yes (Other)
  Sender: FDA-Public Use
  Company Number: PHEH2005US02736

PATIENT
  Age: 74 Year
  Sex: Male

DRUGS (16)
  1. TAXOL [Concomitant]
     Dosage: UNK, UNK
     Dates: start: 20030101
  2. ZOLADEX [Concomitant]
     Dosage: UNK, UNK
  3. CASODEX [Concomitant]
     Dosage: UNK, UNK
  4. PRINIVIL [Concomitant]
  5. ZOCOR [Concomitant]
  6. SELENIUM TRACE METAL ADDITIVE [Concomitant]
  7. MULTI-VITAMINS [Concomitant]
  8. CALCIUM GLUCONATE [Concomitant]
  9. COUMADIN [Concomitant]
  10. ACETYL SALICYLIC ACID USP BAT [Concomitant]
     Dosage: 81 MG, QD
  11. LASIX [Concomitant]
  12. NAPROSYN [Concomitant]
  13. COMPAZINE [Concomitant]
     Dosage: UNK, PRN
  14. PROPRANOLOL [Concomitant]
  15. EMCYT [Concomitant]
  16. ZOMETA [Suspect]
     Indication: PROSTATE CANCER METASTATIC
     Dosage: 4 MG, Q 4 WEEKS
     Dates: start: 20030123, end: 20050216

REACTIONS (2)
  - DENTAL TREATMENT [None]
  - OSTEONECROSIS [None]
